FAERS Safety Report 25343359 (Version 1)
Quarter: 2025Q2

REPORT INFORMATION
  Report Type: Spontaneous
  Country: FR (occurrence: FR)
  Receive Date: 20250521
  Receipt Date: 20250521
  Transmission Date: 20250716
  Serious: Yes (Disabling)
  Sender: MERCK SHARP & DOHME LLC
  Company Number: None

PATIENT
  Age: 53 Year
  Sex: Female
  Weight: 64 kg

DRUGS (5)
  1. TEMODAL [Suspect]
     Active Substance: TEMOZOLOMIDE
     Indication: Glioblastoma
     Dosage: 240 MG 5 DAYS PER MONTH
     Route: 048
     Dates: start: 20240527
  2. ONDANSETRON [Concomitant]
     Active Substance: ONDANSETRON
     Indication: Epilepsy
     Dosage: 8 MG 5 DAYS PER MONTH
     Route: 048
     Dates: start: 202307
  3. AVASTIN [Suspect]
     Active Substance: BEVACIZUMAB
     Indication: Glioblastoma
     Route: 042
     Dates: start: 20240527
  4. VIMPAT 200 mg, film-coated tablet [Concomitant]
     Indication: Epilepsy
     Dosage: 200 MG X2/DAY
     Route: 048
     Dates: start: 202307
  5. KEPPRA [Concomitant]
     Active Substance: LEVETIRACETAM
     Indication: Epilepsy
     Dosage: 1500 MG X2/DAY
     Route: 048
     Dates: start: 202208

REACTIONS (1)
  - Hypoacusis [Not Recovered/Not Resolved]

NARRATIVE: CASE EVENT DATE: 20250401
